FAERS Safety Report 8193425-2 (Version None)
Quarter: 2012Q1

REPORT INFORMATION
  Report Type: 
  Country: None (occurrence: None)
  Receive Date: 20120308
  Receipt Date: 20120227
  Transmission Date: 20120608
  Serious: Yes (Hospitalization)
  Sender: FDA-Public Use
  Company Number: US-ELI_LILLY_AND_COMPANY-US201202008280

PATIENT
  Age: 67 Year
  Sex: Female

DRUGS (3)
  1. ARIMIDEX [Concomitant]
     Dosage: 10 MG, QD
  2. FORTEO [Suspect]
     Indication: OSTEOPOROSIS
     Dosage: 20 UG, QD
     Dates: start: 20120201
  3. VAGIFEM [Concomitant]
     Dosage: 10 UG, 2/W
     Route: 067

REACTIONS (2)
  - DIVERTICULITIS [None]
  - RECTAL HAEMORRHAGE [None]
